FAERS Safety Report 7221698-9 (Version None)
Quarter: 2011Q1

REPORT INFORMATION
  Report Type: 
  Country: None (occurrence: None)
  Receive Date: 20110112
  Receipt Date: 20110107
  Transmission Date: 20110831
  Serious: Yes (Death)
  Sender: FDA-Public Use
  Company Number: FR-ROCHE-752219

PATIENT
  Age: 68 Year
  Sex: Female

DRUGS (2)
  1. FOLFOX REGIMEN [Concomitant]
  2. AVASTIN [Suspect]
     Route: 065

REACTIONS (1)
  - CARDIAC DISORDER [None]
